FAERS Safety Report 10779004 (Version 1)
Quarter: 2015Q1

REPORT INFORMATION
  Report Type: Spontaneous
  Country: US (occurrence: None)
  Receive Date: 20150206
  Receipt Date: 20150206
  Transmission Date: 20150721
  Serious: Yes (Other)
  Sender: FDA-Public Use
  Company Number: 20150052

PATIENT
  Age: 17 Year
  Sex: Female

DRUGS (4)
  1. INJECTAFER [Suspect]
     Active Substance: FERRIC CARBOXYMALTOSE
     Indication: MENORRHAGIA
     Route: 042
     Dates: start: 20141212, end: 20141212
  2. AYGESTIN (NORETHINDRONE) [Concomitant]
  3. INJECTAFER [Suspect]
     Active Substance: FERRIC CARBOXYMALTOSE
     Indication: IRON DEFICIENCY ANAEMIA
     Route: 042
     Dates: start: 20141212, end: 20141212
  4. ELAVIL (AMITRIPTYLINE) [Concomitant]

REACTIONS (5)
  - Tachycardia [None]
  - Choking sensation [None]
  - Cough [None]
  - Dyspnoea [None]
  - Infusion related reaction [None]

NARRATIVE: CASE EVENT DATE: 20141212
